FAERS Safety Report 16388582 (Version 1)
Quarter: 2019Q3

REPORT INFORMATION
  Report Type: Spontaneous
  Country: US (occurrence: US)
  Receive Date: 20190601
  Receipt Date: 20190601
  Transmission Date: 20191004
  Serious: No
  Sender: FDA-Public Use
  Company Number: None

PATIENT
  Age: 20 Year
  Sex: Female
  Weight: 54.45 kg

DRUGS (1)
  1. DEXTROAMPHET SACCHARAT, AMPHET ASPARTATE, DEXTROAMPHET SULFATE AND AMPHET SULFAT [Suspect]
     Active Substance: AMPHETAMINE ASPARTATE\AMPHETAMINE SULFATE\DEXTROAMPHETAMINE SACCHARATE\DEXTROAMPHETAMINE SULFATE
     Indication: ATTENTION DEFICIT/HYPERACTIVITY DISORDER
     Dosage: ?          QUANTITY:30 TABLET(S);?
     Route: 048

REACTIONS (11)
  - Product substitution issue [None]
  - Headache [None]
  - Mental fatigue [None]
  - Asthenia [None]
  - Depression [None]
  - Fatigue [None]
  - Agitation [None]
  - Mental impairment [None]
  - Speech disorder [None]
  - Pain [None]
  - Product physical issue [None]

NARRATIVE: CASE EVENT DATE: 20190530
